FAERS Safety Report 7414615-X (Version None)
Quarter: 2011Q2

REPORT INFORMATION
  Report Type: 
  Country: None (occurrence: None)
  Receive Date: 20110411
  Receipt Date: 20110411
  Transmission Date: 20111010
  Serious: No
  Sender: FDA-Public Use
  Company Number: None

PATIENT
  Sex: Female

DRUGS (1)
  1. TARCEVA [Suspect]
     Indication: LUNG NEOPLASM MALIGNANT
     Dosage: 150MG QD PO
     Route: 048
     Dates: start: 20100608

REACTIONS (4)
  - PAIN IN EXTREMITY [None]
  - SKIN CHAPPED [None]
  - HYPERAESTHESIA [None]
  - SKIN INFECTION [None]
